FAERS Safety Report 7930032-8 (Version None)
Quarter: 2011Q4

REPORT INFORMATION
  Report Type: 
  Country: None (occurrence: None)
  Receive Date: 20111121
  Receipt Date: 20111114
  Transmission Date: 20120403
  Serious: Yes (Death)
  Sender: FDA-Public Use
  Company Number: JP-ASTELLAS-2011JP006093

PATIENT
  Age: 83 Year
  Sex: Female

DRUGS (6)
  1. ETODOLAC [Concomitant]
     Dosage: 400 MG, UNKNOWN/D
     Route: 048
     Dates: start: 20080724, end: 20101022
  2. PROGRAF [Suspect]
     Indication: RHEUMATOID ARTHRITIS
     Dosage: 1.5 MG, UID/QD
     Route: 048
     Dates: end: 20110121
  3. PREDNISOLONE [Suspect]
     Indication: RHEUMATOID ARTHRITIS
     Dosage: 25 MG, UNKNOWN/D
     Route: 048
     Dates: end: 20110121
  4. CELECOXIB [Suspect]
     Indication: RHEUMATOID ARTHRITIS
     Dosage: 200 MG, BID
     Route: 048
     Dates: start: 20080613, end: 20080723
  5. JANUVIA [Concomitant]
     Indication: DIABETES MELLITUS
     Dosage: 50 MG, UID/QD
     Route: 048
     Dates: end: 20110121
  6. LOSARTAN POTASSIUM [Concomitant]
     Indication: HYPERTENSION
     Dosage: 37.5 MG, BID
     Route: 048
     Dates: end: 20110121

REACTIONS (1)
  - PNEUMONIA [None]
